FAERS Safety Report 19008428 (Version 2)
Quarter: 2022Q1

REPORT INFORMATION
  Report Type: Spontaneous
  Country: US (occurrence: US)
  Receive Date: 20210315
  Receipt Date: 20220218
  Transmission Date: 20220423
  Serious: No
  Sender: FDA-Public Use
  Company Number: US-COLGATE PALMOLIVE COMPANY-20210100183

PATIENT

DRUGS (1)
  1. PERIOGARD [Suspect]
     Active Substance: CHLORHEXIDINE GLUCONATE
     Indication: Oral surgery
     Dosage: UNK

REACTIONS (2)
  - Stomatitis [Recovered/Resolved]
  - Pain [Recovered/Resolved]
